FAERS Safety Report 6235592-3 (Version None)
Quarter: 2009Q2

REPORT INFORMATION
  Report Type: 
  Country: None (occurrence: None)
  Receive Date: 20090616
  Receipt Date: 20090601
  Transmission Date: 20091009
  Serious: Yes (Life-Threatening)
  Sender: FDA-Public Use
  Company Number: GB-DEXPHARM-20090818

PATIENT
  Age: 66 Year

DRUGS (3)
  1. OMEPRAZOLE [Suspect]
     Dosage: ORAL
     Route: 048
     Dates: start: 20090301, end: 20090501
  2. LISINOPRIL [Concomitant]
  3. PREDNISOLONE [Concomitant]

REACTIONS (1)
  - TOXIC EPIDERMAL NECROLYSIS [None]
